FAERS Safety Report 7884426-X (Version None)
Quarter: 2011Q4

REPORT INFORMATION
  Report Type: 
  Country: None (occurrence: None)
  Receive Date: 20111102
  Receipt Date: 20110816
  Transmission Date: 20120403
  Serious: No
  Sender: FDA-Public Use
  Company Number: US-ASTRAZENECA-2011SE36122

PATIENT
  Age: 39 Year
  Sex: Male

DRUGS (12)
  1. CALCIUM+D [Concomitant]
     Dosage: 600-200G DAILY
     Route: 048
  2. LABETALOL HCL [Concomitant]
     Route: 048
  3. LOMOTIL [Concomitant]
     Dosage: 0.025-25 MG PRN
     Route: 048
  4. CALCITRIOL [Concomitant]
     Route: 048
  5. VANDETANIB [Suspect]
     Indication: THYROID CANCER
     Route: 048
     Dates: start: 20110703
  6. CORTISONE ACETATE [Concomitant]
     Route: 048
  7. LEVOTHYROXINE SODIUM [Concomitant]
     Route: 048
  8. FLUDROCORTISONE ACETATE [Concomitant]
     Route: 048
  9. HYDROMORPHONE HCL [Concomitant]
     Indication: DIARRHOEA
     Route: 048
  10. VANDETANIB [Suspect]
     Route: 048
  11. CETIRIZINE HCL [Concomitant]
     Route: 048
  12. PROCHLORPERAZINE MALEATE [Concomitant]
     Route: 048

REACTIONS (8)
  - RASH [None]
  - NAUSEA [None]
  - MUSCULOSKELETAL STIFFNESS [None]
  - DERMATITIS ACNEIFORM [None]
  - HEPATIC ENZYME ABNORMAL [None]
  - SENSITIVITY OF TEETH [None]
  - NECK PAIN [None]
  - DIARRHOEA [None]
